FAERS Safety Report 16154776 (Version 4)
Quarter: 2019Q3

REPORT INFORMATION
  Report Type: Spontaneous
  Country: JP (occurrence: JP)
  Receive Date: 20190403
  Receipt Date: 20190713
  Transmission Date: 20191004
  Serious: Yes (Hospitalization, Disabling, Other)
  Sender: FDA-Public Use
  Company Number: JP-009507513-1812JPN001218J

PATIENT
  Age: 70 Year
  Sex: Female
  Weight: 41 kg

DRUGS (5)
  1. ASTOMIN [Concomitant]
     Active Substance: DIMEMORFAN
     Indication: PROPHYLAXIS
     Dosage: 10 MILLIGRAM, TID
     Route: 048
     Dates: start: 20180702
  2. LANSOPRAZOLE. [Concomitant]
     Active Substance: LANSOPRAZOLE
     Indication: PROPHYLAXIS
     Dosage: 15 MILLIGRAM, QD
     Route: 048
     Dates: start: 20180702
  3. LOXOPROFEN SODIUM HYDRATE [Concomitant]
     Active Substance: LOXOPROFEN SODIUM DIHYDRATE
     Dosage: UNK
     Route: 065
  4. KEYTRUDA [Suspect]
     Active Substance: PEMBROLIZUMAB
     Indication: NON-SMALL CELL LUNG CANCER
     Dosage: 200 MILLIGRAM, Q3W
     Route: 041
     Dates: start: 20180328, end: 20181114
  5. CARBOCISTEINE [Concomitant]
     Active Substance: CARBOCYSTEINE
     Indication: PROPHYLAXIS
     Dosage: 500 MILLIGRAM, TID
     Route: 048
     Dates: start: 20180702

REACTIONS (11)
  - Fulminant type 1 diabetes mellitus [Not Recovered/Not Resolved]
  - Diabetic ketoacidosis [Unknown]
  - Adrenal insufficiency [Recovering/Resolving]
  - Stomatitis [Recovering/Resolving]
  - Hypophysitis [Not Recovered/Not Resolved]
  - Enterocolitis [Recovering/Resolving]
  - Duodenitis [Not Recovered/Not Resolved]
  - Deep vein thrombosis [Recovering/Resolving]
  - Lip swelling [Not Recovered/Not Resolved]
  - Pulmonary embolism [Recovering/Resolving]
  - Hypothyroidism [Unknown]

NARRATIVE: CASE EVENT DATE: 20181128
